FAERS Safety Report 8888829 (Version 1)
Quarter: 2012Q4

REPORT INFORMATION
  Report Type: 
  Country: BE (occurrence: BE)
  Receive Date: 20121106
  Receipt Date: 20121106
  Transmission Date: 20130627
  Serious: Yes (Other)
  Sender: FDA-Public Use
  Company Number: PHHY2012BE099620

PATIENT
  Sex: Male

DRUGS (4)
  1. LAMOTRIGINE [Suspect]
     Indication: CONVULSION
  2. GABAPENTIN [Concomitant]
     Indication: CONVULSION
  3. VALPROIC ACID [Concomitant]
     Indication: CONVULSION
  4. LEVETIRACETAM [Concomitant]
     Indication: CONVULSION

REACTIONS (7)
  - Hypothermia [Recovered/Resolved]
  - Oxygen saturation decreased [Recovered/Resolved]
  - Motor dysfunction [Recovered/Resolved]
  - Decreased appetite [Recovered/Resolved]
  - Apathy [Recovered/Resolved]
  - Altered state of consciousness [Recovered/Resolved]
  - Incorrect dose administered [Unknown]
